FAERS Safety Report 4778666-6 (Version None)
Quarter: 2005Q3

REPORT INFORMATION
  Report Type: 
  Country: None (occurrence: None)
  Receive Date: 20050926
  Receipt Date: 20050914
  Transmission Date: 20060218
  Serious: Yes (Other)
  Sender: FDA-Public Use
  Company Number: 2005AP04922

PATIENT
  Age: 76 Year
  Sex: Female

DRUGS (2)
  1. TAMOXIFEN CITRATE [Suspect]
     Indication: BREAST CANCER
     Route: 048
  2. RADIATION THERAPY [Concomitant]
     Dosage: 50 GY TO THE BREAST

REACTIONS (2)
  - CRYPTOGENIC ORGANIZING PNEUMONIA [None]
  - DIFFUSE ALVEOLAR DAMAGE [None]
